FAERS Safety Report 6853341-2 (Version None)
Quarter: 2010Q3

REPORT INFORMATION
  Report Type: 
  Country: None (occurrence: None)
  Receive Date: 20100717
  Receipt Date: 20071206
  Transmission Date: 20110219
  Serious: No
  Sender: FDA-Public Use
  Company Number: US-PFIZER INC-2007104266

PATIENT
  Sex: Female
  Weight: 54.1 kg

DRUGS (1)
  1. CHANTIX [Suspect]
     Indication: SMOKING CESSATION THERAPY
     Route: 048
     Dates: start: 20071203, end: 20071203

REACTIONS (3)
  - FEELING ABNORMAL [None]
  - PRURITUS GENERALISED [None]
  - SCRATCH [None]
